FAERS Safety Report 7243125-8 (Version None)
Quarter: 2010Q4

REPORT INFORMATION
  Report Type: 
  Country: None (occurrence: None)
  Receive Date: 20101130
  Receipt Date: 20091023
  Transmission Date: 20110411
  Serious: Yes (Hospitalization, Other)
  Sender: FDA-Public Use
  Company Number: 2009SP032781

PATIENT
  Age: 21 Year
  Sex: Female

DRUGS (1)
  1. NUVARING [Suspect]
     Indication: CONTRACEPTION
     Dosage: 1 DF;Q3W; VAG
     Route: 067
     Dates: start: 20090106, end: 20090809

REACTIONS (1)
  - PULMONARY EMBOLISM [None]
